FAERS Safety Report 21775183 (Version 1)
Quarter: 2022Q4

REPORT INFORMATION
  Report Type: Report from Study
  Country: US (occurrence: US)
  Receive Date: 20221225
  Receipt Date: 20221225
  Transmission Date: 20230113
  Serious: No
  Sender: FDA-Public Use
  Company Number: US-JNJFOC-20221218416

PATIENT
  Sex: Female

DRUGS (3)
  1. STELARA [Suspect]
     Active Substance: USTEKINUMAB
     Indication: Crohn^s disease
     Dosage: STRENGTH: UNKNOWN
     Route: 058
  2. STELARA [Suspect]
     Active Substance: USTEKINUMAB
  3. POTASSIUM [Suspect]
     Active Substance: POTASSIUM
     Route: 065

REACTIONS (4)
  - Blood potassium decreased [Unknown]
  - Diarrhoea [Unknown]
  - Nausea [Unknown]
  - Product packaging issue [Unknown]
